FAERS Safety Report 9116000 (Version 2)
Quarter: 2013Q1

REPORT INFORMATION
  Report Type: Report from Study
  Country: None (occurrence: US)
  Receive Date: 20130225
  Receipt Date: 20130315
  Transmission Date: 20140127
  Serious: Yes (Other)
  Sender: FDA-Public Use
  Company Number: US-TEVA-387840USA

PATIENT
  Age: 24 Year
  Sex: Female

DRUGS (3)
  1. CLARAVIS [Suspect]
     Dosage: 80 MILLIGRAM DAILY;
     Route: 048
     Dates: start: 20120922, end: 20130116
  2. CLARAVIS [Suspect]
     Route: 048
     Dates: start: 20120922, end: 20130116
  3. ABORTION PILL [Concomitant]
     Route: 048
     Dates: start: 20130124

REACTIONS (1)
  - Unintended pregnancy [Recovered/Resolved]
